FAERS Safety Report 8611468-9 (Version None)
Quarter: 2012Q3

REPORT INFORMATION
  Report Type: 
  Country: None (occurrence: None)
  Receive Date: 20120809
  Receipt Date: 20120725
  Transmission Date: 20120928
  Serious: Yes (Hospitalization)
  Sender: FDA-Public Use
  Company Number: JP-20120041

PATIENT
  Age: 72 Year
  Sex: Male

DRUGS (1)
  1. 10ML(LIPIODOL ULTRA FLUIDE) (ETHIODIZED OIL),UNKNOWN [Suspect]
     Indication: MEDICAL DEVICE COMPLICATION
     Dosage: INTRA-ARTERIAL
     Route: 013

REACTIONS (4)
  - OFF LABEL USE [None]
  - KLEBSIELLA INFECTION [None]
  - BLOOD CULTURE POSITIVE [None]
  - LIVER ABSCESS [None]
